FAERS Safety Report 6016192-7 (Version None)
Quarter: 2008Q4

REPORT INFORMATION
  Report Type: 
  Country: None (occurrence: None)
  Receive Date: 20081222
  Receipt Date: 20081211
  Transmission Date: 20090506
  Serious: Yes (Hospitalization)
  Sender: FDA-Public Use
  Company Number: JP-ASTRAZENECA-2008AP08323

PATIENT
  Age: 66 Year
  Sex: Male
  Weight: 82 kg

DRUGS (19)
  1. DIPRIVAN INJECTION - KIT [Suspect]
     Dosage: ADMINISTERED AT 5.0 MICG/ML FOR 30 MINUTES AT THE INDUCTION. MAINTAINED AT 2.0-2.2 MICG/ML.
     Route: 042
     Dates: start: 20080501, end: 20080501
  2. DIPRIVAN INJECTION - KIT [Suspect]
     Route: 042
     Dates: start: 20080502, end: 20080502
  3. PLAVIX [Concomitant]
     Indication: THROMBOSIS PROPHYLAXIS
     Route: 048
  4. TAKEPRON [Concomitant]
     Route: 048
  5. LIPITOR [Concomitant]
     Route: 048
  6. ITOROL [Concomitant]
     Indication: ANGINA PECTORIS
     Route: 048
  7. MAGNESIUM OXIDE [Concomitant]
     Route: 048
  8. FENTANYL-100 [Concomitant]
     Indication: INDUCTION OF ANAESTHESIA
     Route: 042
     Dates: start: 20080501, end: 20080501
  9. ESLAX [Concomitant]
     Indication: INDUCTION OF ANAESTHESIA
     Route: 042
     Dates: start: 20080501, end: 20080501
  10. MEXAN [Concomitant]
     Indication: HYPOTENSION
     Route: 065
     Dates: start: 20080501, end: 20080501
  11. NOR-ADRENALIN [Concomitant]
     Indication: HYPOTENSION
     Route: 065
     Dates: start: 20080501, end: 20080501
  12. NOR-ADRENALIN [Concomitant]
     Dosage: DOSE UNKNOWN
     Route: 041
     Dates: start: 20080501, end: 20080502
  13. NICARPINE [Concomitant]
     Indication: MAINTENANCE OF ANAESTHESIA
     Route: 042
     Dates: start: 20080501, end: 20080501
  14. HEPARIN SODIUM [Concomitant]
     Indication: MAINTENANCE OF ANAESTHESIA
     Route: 042
     Dates: start: 20080501, end: 20080501
  15. HEPARIN SODIUM [Concomitant]
     Indication: THROMBOSIS PROPHYLAXIS
     Route: 042
     Dates: start: 20080501, end: 20080501
  16. HEPARIN SODIUM [Concomitant]
     Dosage: DOSE UNKNOWN
     Route: 041
     Dates: start: 20080501, end: 20080502
  17. HEPARIN SODIUM [Concomitant]
     Dosage: DOSE UNKNOWN
     Route: 041
     Dates: start: 20080501, end: 20080502
  18. GLYCEREB [Concomitant]
     Indication: INTRAOCULAR PRESSURE DECREASED
     Dosage: DOSE UNKNOWN
     Route: 041
     Dates: start: 20080501, end: 20080502
  19. RADICUT [Concomitant]
     Indication: CEREBRAL INFARCTION
     Dosage: DOSE UNKNOWN
     Route: 041
     Dates: start: 20080501, end: 20080504

REACTIONS (4)
  - ACCIDENTAL OVERDOSE [None]
  - DELAYED RECOVERY FROM ANAESTHESIA [None]
  - HEMIPLEGIA [None]
  - HYPOTENSION [None]
